FAERS Safety Report 4956857-9 (Version None)
Quarter: 2006Q1

REPORT INFORMATION
  Report Type: 
  Country: None (occurrence: None)
  Receive Date: 20060323
  Receipt Date: 20060310
  Transmission Date: 20060701
  Serious: Yes (Other)
  Sender: FDA-Public Use
  Company Number: DE200601005272

PATIENT
  Age: 55 Year
  Sex: Female

DRUGS (2)
  1. YENTREVE (DULOXETINE HYDROCHLORIDE) CAPSULE [Suspect]
     Indication: STRESS INCONTINENCE
     Dosage: SEE IMAGE
     Route: 048
     Dates: end: 20060123
  2. YENTREVE (DULOXETINE HYDROCHLORIDE) CAPSULE [Suspect]
     Indication: STRESS INCONTINENCE
     Dosage: SEE IMAGE
     Route: 048
     Dates: start: 20040101

REACTIONS (2)
  - RETINAL PIGMENTATION [None]
  - VISUAL DISTURBANCE [None]
